FAERS Safety Report 16666659 (Version 2)
Quarter: 2019Q3

REPORT INFORMATION
  Report Type: Report from Study
  Country: None (occurrence: AR)
  Receive Date: 20190805
  Receipt Date: 20190823
  Transmission Date: 20191004
  Serious: Yes (Hospitalization)
  Sender: FDA-Public Use
  Company Number: AR-ABBVIE-19K-007-2876492-00

PATIENT
  Sex: Female

DRUGS (1)
  1. HUMIRA [Suspect]
     Active Substance: ADALIMUMAB
     Indication: PSORIATIC ARTHROPATHY
     Route: 058
     Dates: start: 20170705

REACTIONS (3)
  - Aphonia [Not Recovered/Not Resolved]
  - Oropharyngeal discomfort [Unknown]
  - Feeding disorder [Unknown]

NARRATIVE: CASE EVENT DATE: 2019
